FAERS Safety Report 11561965 (Version 2)
Quarter: 2015Q4

REPORT INFORMATION
  Report Type: Spontaneous
  Country: BR (occurrence: BR)
  Receive Date: 20150928
  Receipt Date: 20151019
  Transmission Date: 20160304
  Serious: Yes (Other)
  Sender: FDA-Public Use
  Company Number: BR-GLAXOSMITHKLINE-BR2015GSK136888

PATIENT
  Sex: Male

DRUGS (5)
  1. NOVALGINA (DIPYRONE) [Concomitant]
     Indication: PYREXIA
     Dosage: UNK
     Route: 048
     Dates: start: 20150923
  2. ADVIL [Concomitant]
     Active Substance: IBUPROFEN
     Indication: CHILLS
  3. NOVALGINA (DIPYRONE) [Concomitant]
     Indication: CHILLS
  4. ZINNAT [Suspect]
     Active Substance: CEFUROXIME AXETIL
     Indication: SINUSITIS
     Dosage: 2 UNK, QD
     Route: 048
     Dates: start: 20150917
  5. ADVIL [Concomitant]
     Active Substance: IBUPROFEN
     Indication: PYREXIA
     Dosage: 1 UNK, QD
     Route: 048

REACTIONS (6)
  - Dengue fever [Not Recovered/Not Resolved]
  - Pain [Not Recovered/Not Resolved]
  - Catarrh [Not Recovered/Not Resolved]
  - Viral infection [Not Recovered/Not Resolved]
  - Drug ineffective [Not Recovered/Not Resolved]
  - Product quality issue [Unknown]

NARRATIVE: CASE EVENT DATE: 20150917
